FAERS Safety Report 25740520 (Version 1)
Quarter: 2025Q3

REPORT INFORMATION
  Report Type: Spontaneous
  Country: CN (occurrence: CN)
  Receive Date: 20250829
  Receipt Date: 20250829
  Transmission Date: 20251021
  Serious: Yes (Other)
  Sender: BAYER HEALTHCARE PHARMACEUTICALS INC.
  Company Number: CN-BAYER-2025A114570

PATIENT
  Age: 70 Year
  Sex: Male

DRUGS (1)
  1. ULTRAVIST [Suspect]
     Active Substance: IOPROMIDE
     Indication: Computerised tomogram
     Route: 042
     Dates: start: 20250806, end: 20250806

REACTIONS (8)
  - Contrast media allergy [Recovering/Resolving]
  - Erythema [Recovering/Resolving]
  - Rash pruritic [Recovering/Resolving]
  - Oxygen saturation decreased [Recovering/Resolving]
  - Nausea [Recovering/Resolving]
  - Retching [Recovering/Resolving]
  - Dysphoria [Recovering/Resolving]
  - Dyspnoea [Recovering/Resolving]

NARRATIVE: CASE EVENT DATE: 20250806
